FAERS Safety Report 4278991-1 (Version None)
Quarter: 2004Q1

REPORT INFORMATION
  Report Type: 
  Country: None (occurrence: None)
  Receive Date: 20040126
  Receipt Date: 20030317
  Transmission Date: 20041129
  Serious: Yes (Hospitalization, Disabling)
  Sender: FDA-Public Use
  Company Number: WAES 0303USA01603

PATIENT
  Age: 47 Year
  Sex: Male
  Weight: 89 kg

DRUGS (4)
  1. PROPACET 100 [Concomitant]
     Indication: PAIN
  2. WELLBUTRIN SR [Concomitant]
     Indication: EX-SMOKER
     Dates: start: 19980101, end: 20010101
  3. PREVACID [Concomitant]
  4. VIOXX [Suspect]
     Indication: ARTHRALGIA
     Route: 048
     Dates: start: 20001009, end: 20010516

REACTIONS (24)
  - ABDOMINAL PAIN [None]
  - ACUTE MYOCARDIAL INFARCTION [None]
  - ANGINA PECTORIS [None]
  - ANXIETY [None]
  - BACK INJURY [None]
  - CARDIAC ARREST [None]
  - CARDIAC DISORDER [None]
  - CARDIAC FAILURE CONGESTIVE [None]
  - CHEST PAIN [None]
  - CORONARY ARTERY DISEASE [None]
  - CORONARY ARTERY RESTENOSIS [None]
  - HAEMATEMESIS [None]
  - HYPERLIPIDAEMIA [None]
  - HYPERSENSITIVITY [None]
  - HYPERTENSION [None]
  - MUSCLE CONTRACTIONS INVOLUNTARY [None]
  - NON-CARDIAC CHEST PAIN [None]
  - OESOPHAGITIS [None]
  - OSTEOARTHRITIS [None]
  - PULMONARY OEDEMA [None]
  - TENDONITIS [None]
  - URTICARIA [None]
  - VENTRICULAR FIBRILLATION [None]
  - VISUAL ACUITY REDUCED [None]
